FAERS Safety Report 7824049-1 (Version None)
Quarter: 2011Q4

REPORT INFORMATION
  Report Type: 
  Country: None (occurrence: None)
  Receive Date: 20111019
  Receipt Date: 20111013
  Transmission Date: 20120403
  Serious: Yes (Hospitalization)
  Sender: FDA-Public Use
  Company Number: PHEH2011US06138

PATIENT
  Sex: Female
  Weight: 73 kg

DRUGS (7)
  1. OXYCODONE HCL [Concomitant]
     Dosage: 30 MG, UNK
     Route: 048
  2. EXJADE [Suspect]
     Indication: MYELODYSPLASTIC SYNDROME
     Dosage: 500 MG, TID
     Route: 048
     Dates: start: 20110506, end: 20110509
  3. EXJADE [Suspect]
     Indication: IRON OVERLOAD
     Dosage: UNK UKN, UNK
  4. BENTYL [Concomitant]
     Dosage: 10 MG, PRN
     Route: 048
  5. REPAGLINIDE [Concomitant]
     Dosage: 0.5 MG, UNK
     Route: 048
  6. MEGACE [Concomitant]
  7. FENTANYL [Concomitant]
     Dosage: 200 UG, UNK

REACTIONS (3)
  - JOINT SWELLING [None]
  - WOUND [None]
  - OEDEMA PERIPHERAL [None]
